FAERS Safety Report 10037472 (Version 1)
Quarter: 2014Q1

REPORT INFORMATION
  Report Type: Spontaneous
  Country: US (occurrence: None)
  Receive Date: 20140325
  Receipt Date: 20140325
  Transmission Date: 20141002
  Serious: Yes (Other)
  Sender: FDA-Public Use
  Company Number: None

PATIENT
  Sex: 0

DRUGS (8)
  1. FUROSEMIDE [Suspect]
     Indication: BLOOD PRESSURE INCREASED
     Dosage: 20MG?2?BREAKFAST + 6 HOURS? MOUTH
     Route: 048
     Dates: start: 20131216, end: 20140301
  2. MICARDIS [Concomitant]
  3. METOPROLOL TARTRATE [Concomitant]
  4. TARTRATE [Concomitant]
  5. LIPITOR [Concomitant]
  6. LANTUS INSULIN [Concomitant]
  7. ALPRAZOLAM [Concomitant]
  8. ASPIRIN [Concomitant]

REACTIONS (8)
  - Asthenia [None]
  - Rash [None]
  - Muscle spasms [None]
  - Deafness [None]
  - Dizziness [None]
  - Fatigue [None]
  - Dizziness [None]
  - Hypoaesthesia [None]
